FAERS Safety Report 6661243-X (Version None)
Quarter: 2010Q1

REPORT INFORMATION
  Report Type: 
  Country: None (occurrence: None)
  Receive Date: 20100331
  Receipt Date: 20100326
  Transmission Date: 20100710
  Serious: Yes (Death)
  Sender: FDA-Public Use
  Company Number: NL-ROCHE-693864

PATIENT

DRUGS (1)
  1. XELODA [Suspect]
     Indication: COLORECTAL CANCER
     Route: 048

REACTIONS (3)
  - DEATH [None]
  - DIARRHOEA [None]
  - NAUSEA [None]
